FAERS Safety Report 26199110 (Version 1)
Quarter: 2025Q4

REPORT INFORMATION
  Report Type: Spontaneous
  Country: CN (occurrence: CN)
  Receive Date: 20251225
  Receipt Date: 20251225
  Transmission Date: 20260118
  Serious: Yes (Other)
  Sender: SHENZHEN TECHDOW PHARMACEUTICAL
  Company Number: CN-adr44030518216-HPR2025000879

PATIENT
  Age: 63 Year
  Sex: Male
  Weight: 55 kg

DRUGS (3)
  1. ENOXAPARIN SODIUM [Suspect]
     Active Substance: ENOXAPARIN SODIUM
     Indication: Anticoagulant therapy
     Dosage: 2000IU,SINGLE DOSE
     Dates: start: 20251203, end: 20251203
  2. ENOXAPARIN SODIUM [Suspect]
     Active Substance: ENOXAPARIN SODIUM
     Indication: Anticoagulant therapy
     Dosage: 4000IU,SINGLE DOSE
     Dates: start: 20251204, end: 20251204
  3. ENOXAPARIN SODIUM [Suspect]
     Active Substance: ENOXAPARIN SODIUM
     Indication: Anticoagulant therapy
     Dosage: 4000IU,QD
     Dates: start: 20251205, end: 20251209

REACTIONS (2)
  - Haemoptysis [Unknown]
  - Coagulopathy [Unknown]

NARRATIVE: CASE EVENT DATE: 20251209
